FAERS Safety Report 15808895 (Version 1)
Quarter: 2019Q1

REPORT INFORMATION
  Report Type: Spontaneous
  Country: PE (occurrence: PE)
  Receive Date: 20190110
  Receipt Date: 20190110
  Transmission Date: 20190417
  Serious: Yes (Hospitalization)
  Sender: FDA-Public Use
  Company Number: PE-PFIZER INC-2018441802

PATIENT
  Age: 71 Year
  Sex: Female

DRUGS (2)
  1. XALATAN [Suspect]
     Active Substance: LATANOPROST
     Indication: AGE-RELATED MACULAR DEGENERATION
     Dosage: 1 DROP IN EACH EYE [2 DROPS (GTT) TOTAL]
     Route: 047
     Dates: start: 2015
  2. XALATAN [Suspect]
     Active Substance: LATANOPROST
     Indication: OCULAR HYPERTENSION

REACTIONS (1)
  - Spinal osteoarthritis [Recovered/Resolved]
